FAERS Safety Report 9888300 (Version 1)
Quarter: 2014Q1

REPORT INFORMATION
  Report Type: Spontaneous
  Country: US (occurrence: US)
  Receive Date: 20140211
  Receipt Date: 20140211
  Transmission Date: 20141002
  Serious: No
  Sender: FDA-Public Use
  Company Number: US-PFIZER INC-2014036737

PATIENT
  Age: 62 Year
  Sex: Female
  Weight: 83.9 kg

DRUGS (7)
  1. XELJANZ [Suspect]
     Indication: RHEUMATOID ARTHRITIS
     Dosage: 5 MG, 2X/DAY
     Route: 048
     Dates: start: 201306
  2. JUICE PLUS [Concomitant]
     Dosage: UNK
  3. ZINC [Concomitant]
     Dosage: UNK
  4. VITAMIN E [Concomitant]
     Dosage: UNK
  5. VITAMIN D [Concomitant]
     Dosage: UNK
  6. FISH OIL [Concomitant]
     Dosage: UNK
  7. POTASSIUM [Concomitant]
     Dosage: UNK

REACTIONS (1)
  - Hepatic enzyme increased [Unknown]
